FAERS Safety Report 10174197 (Version 1)
Quarter: 2014Q2

REPORT INFORMATION
  Report Type: Spontaneous
  Country: US (occurrence: None)
  Receive Date: 20140514
  Receipt Date: 20140514
  Transmission Date: 20141212
  Serious: No
  Sender: FDA-Public Use
  Company Number: None

PATIENT
  Age: 66 Year
  Sex: 0
  Weight: 66.8 kg

DRUGS (1)
  1. RIBASPHERE [Suspect]
     Indication: CHRONIC HEPATITIS C
     Route: 048
     Dates: start: 20140406

REACTIONS (6)
  - Rash [None]
  - Rash [None]
  - Ear swelling [None]
  - Ear pain [None]
  - Heart rate increased [None]
  - Drug intolerance [None]
